FAERS Safety Report 12598120 (Version 1)
Quarter: 2016Q3

REPORT INFORMATION
  Report Type: Spontaneous
  Country: US (occurrence: None)
  Receive Date: 20160726
  Receipt Date: 20160726
  Transmission Date: 20161109
  Serious: Yes (Other)
  Sender: FDA-Public Use
  Company Number: None

PATIENT
  Age: 54 Year
  Sex: Female
  Weight: 65.77 kg

DRUGS (1)
  1. FLUPHENAZINE DECANOATE 25 MG/ML VIAL [Suspect]
     Active Substance: FLUPHENAZINE DECANOATE
     Indication: SCHIZOPHRENIA
     Dosage: 5 MG EVERY 4 WEEKS  ONCE EVERY 4 WEEKS LEFT ARM INJECTION IN RIGHT OR
     Dates: start: 19891231

REACTIONS (1)
  - White blood cell count decreased [None]
